FAERS Safety Report 7498950-5 (Version None)
Quarter: 2011Q2

REPORT INFORMATION
  Report Type: 
  Country: None (occurrence: None)
  Receive Date: 20110524
  Receipt Date: 20110517
  Transmission Date: 20111010
  Serious: Yes (Hospitalization)
  Sender: FDA-Public Use
  Company Number: US-SANOFI-AVENTIS-2011SA031478

PATIENT
  Age: 61 Year
  Sex: Female

DRUGS (1)
  1. LOVENOX [Suspect]
     Route: 048

REACTIONS (2)
  - RENAL FAILURE ACUTE [None]
  - ACCIDENTAL EXPOSURE [None]
